FAERS Safety Report 11952410 (Version 1)
Quarter: 2016Q1

REPORT INFORMATION
  Report Type: Spontaneous
  Country: CA (occurrence: CA)
  Receive Date: 20160126
  Receipt Date: 20160126
  Transmission Date: 20160526
  Serious: Yes (Life-Threatening)
  Sender: FDA-Public Use
  Company Number: CA-ASTRAZENECA-2016SE06381

PATIENT
  Age: 59 Year
  Sex: Male

DRUGS (6)
  1. PANTOPRAZOLE [Concomitant]
     Active Substance: PANTOPRAZOLE SODIUM
  2. ROSUVASTATIN [Concomitant]
     Active Substance: ROSUVASTATIN
  3. HYDROMORPHONE [Concomitant]
     Active Substance: HYDROMORPHONE
  4. METFORMIN [Concomitant]
     Active Substance: METFORMIN HYDROCHLORIDE
  5. FORXIGA [Suspect]
     Active Substance: DAPAGLIFLOZIN
     Indication: DIABETES MELLITUS
     Route: 048
  6. NICOTINE. [Concomitant]
     Active Substance: NICOTINE

REACTIONS (1)
  - Diabetic ketoacidosis [Recovered/Resolved]
